FAERS Safety Report 11055078 (Version 1)
Quarter: 2015Q2

REPORT INFORMATION
  Report Type: Spontaneous
  Country: US (occurrence: US)
  Receive Date: 20150422
  Receipt Date: 20150422
  Transmission Date: 20150821
  Serious: No
  Sender: FDA-Public Use
  Company Number: US-SA-2014SA116543

PATIENT
  Age: 62 Year
  Sex: Female

DRUGS (2)
  1. ENOXAPARIN SODIUM - WINTHROP [Suspect]
     Active Substance: ENOXAPARIN SODIUM
     Indication: PROPHYLAXIS
     Dosage: STRENGTH: 40 MG
     Route: 065
     Dates: start: 20140819
  2. SYNTHROID [Concomitant]
     Active Substance: LEVOTHYROXINE SODIUM
     Dates: start: 2001

REACTIONS (2)
  - Injection site mass [Not Recovered/Not Resolved]
  - Injection site discolouration [Not Recovered/Not Resolved]
